FAERS Safety Report 17694738 (Version 2)
Quarter: 2020Q2

REPORT INFORMATION
  Report Type: Spontaneous
  Country: ES (occurrence: ES)
  Receive Date: 20200422
  Receipt Date: 20200428
  Transmission Date: 20200714
  Serious: Yes (Death)
  Sender: FDA-Public Use
  Company Number: NVSC2020ES107877

PATIENT
  Age: 76 Year
  Sex: Male
  Weight: 80 kg

DRUGS (3)
  1. INFLIXIMAB [Suspect]
     Active Substance: INFLIXIMAB
     Indication: PNEUMONITIS
     Dosage: (SOLUTION FOR INFUSION)
     Route: 042
     Dates: start: 20191114
  2. MYCOPHENOLATE MOFETIL. [Suspect]
     Active Substance: MYCOPHENOLATE MOFETIL
     Indication: PNEUMONITIS
     Dosage: UNK
     Route: 065
     Dates: start: 20191127
  3. PEMBROLIZUMAB. [Suspect]
     Active Substance: PEMBROLIZUMAB
     Indication: LUNG NEOPLASM MALIGNANT
     Dosage: UNK
     Route: 065
     Dates: start: 20190926, end: 20191021

REACTIONS (4)
  - Disease progression [Fatal]
  - Product use in unapproved indication [Unknown]
  - Lung neoplasm malignant [Fatal]
  - Off label use [Unknown]

NARRATIVE: CASE EVENT DATE: 201911
